FAERS Safety Report 9346439 (Version 2)
Quarter: 2013Q2

REPORT INFORMATION
  Report Type: Spontaneous
  Country: JP (occurrence: JP)
  Receive Date: 20130613
  Receipt Date: 20130617
  Transmission Date: 20140414
  Serious: Yes (Other)
  Sender: FDA-Public Use
  Company Number: JP-009507513-1306JPN005138

PATIENT
  Age: 71 Year
  Sex: Female

DRUGS (18)
  1. PREMINENT TABLETS [Suspect]
     Indication: RHABDOMYOLYSIS
     Dosage: DAILY DOSE UNKNOWN
     Route: 048
     Dates: start: 20130212, end: 20130409
  2. AMLODIN (AMLODIPINE BESYLATE) [Concomitant]
     Dosage: POR, DAILY DOSAGE UNKNOWN
     Route: 048
  3. HUSCODE [Concomitant]
     Indication: NASOPHARYNGITIS
     Dosage: 2 DF, TID
     Route: 048
     Dates: start: 20130325, end: 20130330
  4. SP TROCHES [Concomitant]
     Dosage: DAILY DOSAGE UNKNOWN
     Route: 048
     Dates: start: 20130325, end: 20130329
  5. MOHRUS L [Concomitant]
     Dosage: 1 DOSAGE FORM, QD
     Route: 062
     Dates: start: 20130325
  6. FLOMOX [Concomitant]
     Indication: COUGH
     Dosage: 1 DF, TID
     Route: 048
     Dates: start: 20130326
  7. FLOMOX [Concomitant]
     Indication: PRODUCTIVE COUGH
  8. FLOMOX [Concomitant]
     Indication: BODY TEMPERATURE INCREASED
  9. MUCOTHIO [Concomitant]
     Indication: COUGH
     Dosage: 2 DF, TID
     Route: 048
     Dates: start: 20130326
  10. MUCOTHIO [Concomitant]
     Indication: PRODUCTIVE COUGH
  11. MUCOTHIO [Concomitant]
     Indication: BODY TEMPERATURE INCREASED
  12. BRUFEN [Concomitant]
     Indication: COUGH
     Dosage: 2 DF, TID
     Route: 048
     Dates: start: 20130326, end: 20130329
  13. BRUFEN [Concomitant]
     Indication: PRODUCTIVE COUGH
  14. REBAMIPIDE [Concomitant]
     Dosage: 1 DF, TID
     Route: 048
     Dates: start: 20130326, end: 20130329
  15. RESPLEN [Concomitant]
     Indication: COUGH
     Dosage: 1 DF, TID
     Route: 048
     Dates: start: 20130330, end: 20130404
  16. RESPLEN [Concomitant]
     Indication: PRODUCTIVE COUGH
  17. LOXONIN [Concomitant]
  18. POLARAMINE [Concomitant]

REACTIONS (1)
  - Rhabdomyolysis [Recovered/Resolved]
